FAERS Safety Report 12001168 (Version 1)
Quarter: 2016Q1

REPORT INFORMATION
  Report Type: Other
  Country: GB (occurrence: GB)
  Receive Date: 20160204
  Receipt Date: 20160204
  Transmission Date: 20160526
  Serious: Yes (Other)
  Sender: FDA-Public Use
  Company Number: GB-MYLANLABS-2016M1003778

PATIENT

DRUGS (1)
  1. OMEPRAZOLE. [Suspect]
     Active Substance: OMEPRAZOLE
     Indication: ABDOMINAL PAIN UPPER
     Dosage: 40 MG, UNK
     Route: 048
     Dates: start: 20141224, end: 20150113

REACTIONS (4)
  - Panic attack [Recovered/Resolved]
  - Palpitations [Recovering/Resolving]
  - Heart rate irregular [Unknown]
  - Fatigue [Unknown]

NARRATIVE: CASE EVENT DATE: 20141225
